FAERS Safety Report 5486479-5 (Version None)
Quarter: 2007Q4

REPORT INFORMATION
  Report Type: 
  Country: None (occurrence: None)
  Receive Date: 20071016
  Receipt Date: 20071003
  Transmission Date: 20080405
  Serious: Yes (Death, Life-Threatening)
  Sender: FDA-Public Use
  Company Number: B0490555A

PATIENT
  Age: 91 Year
  Sex: Male

DRUGS (11)
  1. ARIXTRA [Suspect]
     Indication: ARRHYTHMIA
     Dosage: 7.5MG PER DAY
     Route: 058
     Dates: start: 20070528, end: 20070608
  2. COUMADIN [Suspect]
     Dosage: 4MG PER DAY
     Route: 048
     Dates: start: 20070605, end: 20070608
  3. ASPEGIC 325 [Suspect]
     Dosage: 100MG PER DAY
     Route: 048
     Dates: start: 20070525
  4. INIPOMP [Concomitant]
     Dosage: 40MG PER DAY
     Route: 048
     Dates: start: 20070524
  5. LASIX [Concomitant]
     Dosage: 80MG PER DAY
     Route: 048
  6. DIGOXIN [Concomitant]
     Dosage: .125MG PER DAY
     Route: 048
  7. DOLIPRANE [Concomitant]
     Dosage: 1G THREE TIMES PER DAY
     Route: 048
     Dates: start: 20070525
  8. OFLOCET [Concomitant]
     Dosage: 200MG TWICE PER DAY
     Route: 048
     Dates: start: 20070529, end: 20070608
  9. PERINDOPRIL ERBUMINE [Concomitant]
     Dosage: 2MG PER DAY
     Route: 048
     Dates: start: 20070531
  10. DIFFU K [Concomitant]
     Route: 048
     Dates: start: 20070531, end: 20070612
  11. COLCHICINE HOUDE [Concomitant]
     Dosage: 1MG PER DAY
     Route: 048
     Dates: start: 20070605, end: 20070611

REACTIONS (8)
  - CEREBRAL HAEMATOMA [None]
  - CEREBRAL HAEMORRHAGE [None]
  - DISTURBANCE IN ATTENTION [None]
  - GINGIVAL BLEEDING [None]
  - HAEMARTHROSIS [None]
  - HYDROCEPHALUS [None]
  - PAIN IN EXTREMITY [None]
  - STRABISMUS [None]
